FAERS Safety Report 4870054-7 (Version None)
Quarter: 2005Q4

REPORT INFORMATION
  Report Type: 
  Country: None (occurrence: None)
  Receive Date: 20051227
  Receipt Date: 20051214
  Transmission Date: 20060501
  Serious: Yes (Hospitalization)
  Sender: FDA-Public Use
  Company Number: 234694K05USA

PATIENT
  Age: 54 Year
  Sex: Male

DRUGS (6)
  1. REBIF [Suspect]
     Indication: MULTIPLE SCLEROSIS
     Dosage: 44 MCG, 3 IN 1 WEEKS
     Dates: end: 20050808
  2. CARAFATE [Concomitant]
  3. ASIPHEX (RABEPRAZOLE SODIUM) [Concomitant]
  4. IMITREX [Concomitant]
  5. OMEPRAZOLE [Concomitant]
  6. NORVASC [Concomitant]

REACTIONS (8)
  - CHILLS [None]
  - DECREASED APPETITE [None]
  - ERYTHEMA [None]
  - HYPERHIDROSIS [None]
  - INJECTION SITE CELLULITIS [None]
  - MALAISE [None]
  - NAUSEA [None]
  - PYREXIA [None]
